FAERS Safety Report 25796353 (Version 2)
Quarter: 2025Q4

REPORT INFORMATION
  Report Type: Report from Study
  Country: US (occurrence: US)
  Receive Date: 20250912
  Receipt Date: 20251013
  Transmission Date: 20260118
  Serious: No
  Sender: MALLINCKRODT
  Company Number: US-MALLINCKRODT-MNK202505288

PATIENT
  Age: 61 Year
  Sex: Male

DRUGS (2)
  1. CORTICOTROPIN [Suspect]
     Active Substance: CORTICOTROPIN
     Indication: Rheumatoid arthritis
     Dosage: 80 UNITS
     Route: 058
     Dates: start: 20250817
  2. RINVOQ [Concomitant]
     Active Substance: UPADACITINIB
     Dosage: UNKNOWN

REACTIONS (6)
  - Feeling abnormal [Unknown]
  - Hepatic enzyme increased [Unknown]
  - Fatigue [Unknown]
  - Insomnia [Unknown]
  - Contraindicated product administered [Unknown]
  - Inappropriate schedule of product administration [Unknown]

NARRATIVE: CASE EVENT DATE: 20250101
